FAERS Safety Report 6391842-4 (Version None)
Quarter: 2009Q4

REPORT INFORMATION
  Report Type: 
  Country: None (occurrence: None)
  Receive Date: 20091007
  Receipt Date: 20090929
  Transmission Date: 20100525
  Serious: Yes (Hospitalization)
  Sender: FDA-Public Use
  Company Number: US-AVENTIS-200914262US

PATIENT
  Sex: Female
  Weight: 102.06 kg

DRUGS (7)
  1. LANTUS [Suspect]
     Route: 058
     Dates: start: 20080101
  2. GLIPIZIDE [Concomitant]
     Dosage: DOSE: 5 MG
  3. VERAPAMIL [Concomitant]
  4. COZAAR [Concomitant]
     Dosage: DOSE QUANTITY: 100
  5. NEXIUM [Concomitant]
     Indication: GASTROOESOPHAGEAL REFLUX DISEASE
  6. ASPIRIN [Concomitant]
     Indication: THROMBOSIS PROPHYLAXIS
  7. ZYRTEC [Concomitant]
     Dates: start: 20090101

REACTIONS (6)
  - INJECTION SITE HAEMATOMA [None]
  - INJECTION SITE HAEMORRHAGE [None]
  - INJECTION SITE IRRITATION [None]
  - INJECTION SITE NODULE [None]
  - INJECTION SITE PAIN [None]
  - STAPHYLOCOCCAL INFECTION [None]
